FAERS Safety Report 17139261 (Version 1)
Quarter: 2019Q4

REPORT INFORMATION
  Report Type: Spontaneous
  Country: US (occurrence: US)
  Receive Date: 20191210
  Receipt Date: 20191210
  Transmission Date: 20200122
  Serious: Yes (Hospitalization)
  Sender: FDA-Public Use
  Company Number: None

PATIENT
  Sex: Male

DRUGS (10)
  1. REVLIMID [Suspect]
     Active Substance: LENALIDOMIDE
     Indication: PLASMA CELL MYELOMA
     Route: 048
     Dates: start: 20190305
  2. WARFARIN TAB 5MG [Concomitant]
     Dates: start: 20190304
  3. ONDANSETRON TAB 8MG [Concomitant]
     Active Substance: ONDANSETRON
     Dates: start: 20190304
  4. TIZANIDINE TAB 4MG [Concomitant]
     Dates: start: 20190304
  5. HYDROCO/APAP TAB 5-325MG [Concomitant]
     Active Substance: ACETAMINOPHEN\HYDROCODONE
     Dates: start: 20190304
  6. GABAPENTIN TAB 600MG [Concomitant]
     Dates: start: 20190304
  7. DEXAMETHASON TAB 0.75MG [Concomitant]
     Dates: start: 20190304
  8. LEVOTHYROXIN TAB 100MCG [Concomitant]
     Dates: start: 20190304
  9. LISINOP/HCTZ TAB 10-12.5 [Concomitant]
     Dates: start: 20190304
  10. ENOXAPARIN INJ 150MG/ML [Concomitant]
     Active Substance: ENOXAPARIN SODIUM
     Dates: start: 20190304

REACTIONS (2)
  - Fall [None]
  - Confusional state [None]
